FAERS Safety Report 25206665 (Version 1)
Quarter: 2025Q2

REPORT INFORMATION
  Report Type: Spontaneous
  Country: SE (occurrence: SE)
  Receive Date: 20250417
  Receipt Date: 20250417
  Transmission Date: 20250716
  Serious: Yes (Hospitalization, Other)
  Sender: GILEAD
  Company Number: None

PATIENT
  Age: 47 Year
  Sex: Female

DRUGS (1)
  1. VEKLURY [Suspect]
     Active Substance: REMDESIVIR
     Indication: COVID-19
     Route: 065
     Dates: start: 20210111, end: 20210112

REACTIONS (4)
  - Neutropenia [Recovered/Resolved]
  - Muscle spasms [Recovered/Resolved with Sequelae]
  - Diarrhoea [Recovered/Resolved with Sequelae]
  - Headache [Recovered/Resolved with Sequelae]

NARRATIVE: CASE EVENT DATE: 20210111
